FAERS Safety Report 4350840-2 (Version None)
Quarter: 2004Q2

REPORT INFORMATION
  Report Type: 
  Country: None (occurrence: None)
  Receive Date: 20040428
  Receipt Date: 20040309
  Transmission Date: 20050107
  Serious: Yes (Other)
  Sender: FDA-Public Use
  Company Number: 2004017018

PATIENT
  Age: 37 Year
  Sex: Female

DRUGS (2)
  1. ZITHROMAX [Suspect]
     Indication: ILL-DEFINED DISORDER
     Dates: start: 20030201
  2. CIPROFLOXACIN [Suspect]
     Indication: ILL-DEFINED DISORDER
     Dates: start: 20030101

REACTIONS (12)
  - ABDOMINAL PAIN [None]
  - DEAFNESS [None]
  - DIFFICULTY IN WALKING [None]
  - HEPATIC FUNCTION ABNORMAL [None]
  - LOSS OF EMPLOYMENT [None]
  - LUNG DISORDER [None]
  - MASS [None]
  - MEMORY IMPAIRMENT [None]
  - PAIN [None]
  - PARAESTHESIA [None]
  - PYREXIA [None]
  - SCAR [None]
